FAERS Safety Report 9250487 (Version 1)
Quarter: 2013Q1

REPORT INFORMATION
  Report Type: Spontaneous
  Country: US (occurrence: None)
  Receive Date: 20130305
  Receipt Date: 20130305
  Transmission Date: 20140127
  Serious: Yes (Hospitalization, Other)
  Sender: FDA-Public Use
  Company Number: 163-21880-12062664

PATIENT
  Sex: Male

DRUGS (20)
  1. REVLIMID [Suspect]
     Indication: PLASMA CELL MYELOMA
     Route: 048
     Dates: start: 201104
  2. ALLOPURINOL [Concomitant]
  3. IBUPROFEN (IBUPROFEN) [Concomitant]
  4. LEVOFLOXACIN (LEVOFLOXACIN) [Concomitant]
  5. PREDNISONE (PREDNISONE) [Concomitant]
  6. PRILOSEC [Concomitant]
  7. PROPAFENONE (PROPAFENONE) [Concomitant]
  8. SIMVASTATIN (SIMVASTATIN) [Concomitant]
  9. SODIUM BICARBONATE (SODIUM BICARBONATE) [Concomitant]
  10. TRAMADOL (TRAMADOL) [Concomitant]
  11. ERGOCALCIFEROL (ERGOCALCIFEROL) [Concomitant]
  12. BORTEZOMIB (BORTEZOMIB) [Concomitant]
  13. DEXAMETHASONE (DEXAMETHASONE) [Concomitant]
  14. ZOFRAN (ONDANSETRON HYDROCHLORIDE) [Concomitant]
  15. SODIUM CHLORIDE (SODIUM CHLORIDE) [Concomitant]
  16. DOXORUBICIN (DOXORUBICIN) [Concomitant]
  17. VINCRISTINE (VINCRISTINE) [Concomitant]
  18. GRANISETRON (GRANISETRON) [Concomitant]
  19. ZOLEDRONIC ACID (ZOLEDRONIC ACID) [Concomitant]
  20. COUMADIN (WARFARIN SODIUM) [Concomitant]

REACTIONS (5)
  - Anaemia [None]
  - Pain [None]
  - Cough [None]
  - No therapeutic response [None]
  - Renal impairment [None]
